FAERS Safety Report 14723282 (Version 1)
Quarter: 2018Q2

REPORT INFORMATION
  Report Type: Report from Study
  Country: CA (occurrence: CA)
  Receive Date: 20180405
  Receipt Date: 20180405
  Transmission Date: 20180711
  Serious: Yes (Hospitalization, Other)
  Sender: FDA-Public Use
  Company Number: CA-AMGEN-CANSL2018043670

PATIENT
  Age: 68 Year
  Sex: Female

DRUGS (1)
  1. PROLIA [Suspect]
     Active Substance: DENOSUMAB
     Indication: PRODUCT USED FOR UNKNOWN INDICATION
     Dosage: 60 MG/ML, UNK
     Route: 065
     Dates: start: 201301

REACTIONS (30)
  - Asthenia [Unknown]
  - Pain in extremity [Unknown]
  - Skin fragility [Unknown]
  - Feeling abnormal [Unknown]
  - Pyrexia [Unknown]
  - Headache [Unknown]
  - Back pain [Unknown]
  - Poor quality sleep [Recovered/Resolved]
  - Urinary incontinence [Unknown]
  - Arthritis [Unknown]
  - Abnormal behaviour [Recovered/Resolved]
  - Limb discomfort [Unknown]
  - Skin haemorrhage [Unknown]
  - Cerebral vasoconstriction [Recovered/Resolved]
  - Bone pain [Recovered/Resolved]
  - Muscle spasms [Unknown]
  - Neck pain [Unknown]
  - Stress [Unknown]
  - Hand deformity [Not Recovered/Not Resolved]
  - Migraine [Recovered/Resolved]
  - Dry mouth [Unknown]
  - Fatigue [Unknown]
  - Pain [Unknown]
  - Pruritus generalised [Unknown]
  - Head discomfort [Unknown]
  - Arthralgia [Unknown]
  - Pollakiuria [Unknown]
  - Dysgeusia [Recovered/Resolved]
  - Eczema [Unknown]
  - Arthropod bite [Unknown]

NARRATIVE: CASE EVENT DATE: 2013
